FAERS Safety Report 25668506 (Version 1)
Quarter: 2025Q3

REPORT INFORMATION
  Report Type: Spontaneous
  Country: AU (occurrence: AU)
  Receive Date: 20250812
  Receipt Date: 20250812
  Transmission Date: 20251020
  Serious: Yes (Other)
  Sender: ROCHE
  Company Number: AU-002147023-NVSC2025AU123918

PATIENT
  Age: 80 Year
  Sex: Female

DRUGS (19)
  1. RANIBIZUMAB [Suspect]
     Active Substance: RANIBIZUMAB
     Indication: Neovascular age-related macular degeneration
     Route: 065
  2. RANIBIZUMAB [Suspect]
     Active Substance: RANIBIZUMAB
     Route: 050
  3. CHLORAMPHENICOL [Concomitant]
     Active Substance: CHLORAMPHENICOL
     Indication: Prophylaxis
     Route: 047
     Dates: start: 20250331, end: 20250407
  4. CRESTOR [Concomitant]
     Active Substance: ROSUVASTATIN CALCIUM
     Indication: Hypercholesterolaemia
     Dosage: 10 MG, QD (PILL)
     Route: 050
     Dates: start: 2018
  5. Mersyndol [Concomitant]
     Indication: Migraine
     Route: 050
     Dates: start: 2022
  6. ESTRIOL [Concomitant]
     Active Substance: ESTRIOL
     Indication: Urinary tract infection
     Route: 050
     Dates: start: 202410
  7. PANADOL [Concomitant]
     Active Substance: ACETAMINOPHEN
     Indication: Eye pain
     Route: 050
     Dates: start: 20250401
  8. PHENYLEPHRINE HYDROCHLORIDE\PREDNISOLONE ACETATE [Concomitant]
     Active Substance: PHENYLEPHRINE HYDROCHLORIDE\PREDNISOLONE ACETATE
     Route: 047
     Dates: start: 20250402, end: 20250419
  9. PHENYLEPHRINE HYDROCHLORIDE\PREDNISOLONE ACETATE [Concomitant]
     Active Substance: PHENYLEPHRINE HYDROCHLORIDE\PREDNISOLONE ACETATE
     Route: 047
     Dates: start: 20250420, end: 20250425
  10. PHENYLEPHRINE HYDROCHLORIDE\PREDNISOLONE ACETATE [Concomitant]
     Active Substance: PHENYLEPHRINE HYDROCHLORIDE\PREDNISOLONE ACETATE
     Dosage: UNK, QD
     Route: 047
     Dates: start: 20250426, end: 20250502
  11. PHENYLEPHRINE HYDROCHLORIDE\PREDNISOLONE ACETATE [Concomitant]
     Active Substance: PHENYLEPHRINE HYDROCHLORIDE\PREDNISOLONE ACETATE
     Dosage: UNK, QD
     Route: 047
     Dates: start: 20250503, end: 20250509
  12. PROLIA [Concomitant]
     Active Substance: DENOSUMAB
     Indication: Osteoporosis
     Route: 050
     Dates: start: 2021
  13. ASPIRIN [Concomitant]
     Active Substance: ASPIRIN
     Indication: Product used for unknown indication
     Dosage: 100 MG, QD (PILL)
     Route: 050
     Dates: start: 20250402
  14. FELODIPINE [Concomitant]
     Active Substance: FELODIPINE
     Indication: Hypertension
     Route: 050
     Dates: start: 202306
  15. MOXONIDINE [Concomitant]
     Active Substance: MOXONIDINE
     Indication: Hypertension
     Dosage: 400 MG, QD
     Route: 050
     Dates: start: 2022
  16. OMEPRAZOLE [Concomitant]
     Active Substance: OMEPRAZOLE
     Indication: Gastrooesophageal reflux disease
     Dosage: 20 MG, QD (PILL)
     Route: 065
     Dates: start: 2014
  17. Triasyn [Concomitant]
     Indication: Hypertension
     Dosage: 5 MG, QD (PILL)
     Route: 050
     Dates: start: 2017
  18. VITAMIN D3 [Concomitant]
     Active Substance: CHOLECALCIFEROL
     Indication: Osteoporosis
     Dosage: 1000 IU, QD
     Route: 050
     Dates: start: 2016
  19. Brahmi [Concomitant]
     Indication: Product used for unknown indication
     Route: 065

REACTIONS (1)
  - Conjunctival retraction [Not Recovered/Not Resolved]

NARRATIVE: CASE EVENT DATE: 20250430
